FAERS Safety Report 7280390-5 (Version None)
Quarter: 2011Q1

REPORT INFORMATION
  Report Type: 
  Country: None (occurrence: None)
  Receive Date: 20110208
  Receipt Date: 20110131
  Transmission Date: 20110831
  Serious: Yes (Hospitalization)
  Sender: FDA-Public Use
  Company Number: FR-ELI_LILLY_AND_COMPANY-FR201101007439

PATIENT
  Sex: Male

DRUGS (7)
  1. FUCIDINE [Concomitant]
     Indication: GENITOURINARY TRACT INFECTION
     Dosage: UNK, 3/D
     Dates: start: 20101027, end: 20101105
  2. HUMALOG [Suspect]
     Indication: TYPE 1 DIABETES MELLITUS
     Dosage: 10 IU, DAILY (1/D)
     Route: 058
  3. LANTUS [Concomitant]
     Indication: TYPE 1 DIABETES MELLITUS
     Dosage: 26 IU, DAILY (1/D)
     Route: 058
     Dates: start: 19920101
  4. APIDRA [Concomitant]
     Indication: TYPE 1 DIABETES MELLITUS
     Dates: start: 19920101
  5. LOVENOX [Concomitant]
     Dosage: 0.4 ML, DAILY (1/D)
     Route: 058
  6. NEXIUM [Concomitant]
  7. OFLOCET [Concomitant]
     Indication: URINARY TRACT INFECTION
     Dosage: 200 MG, 2/D
     Route: 048
     Dates: start: 20101027, end: 20101103

REACTIONS (4)
  - DIABETIC KETOACIDOSIS [None]
  - NEUTROPENIA [None]
  - GENITOURINARY TRACT INFECTION [None]
  - INTENTIONAL DRUG MISUSE [None]
